FAERS Safety Report 24704204 (Version 3)
Quarter: 2025Q3

REPORT INFORMATION
  Report Type: Spontaneous
  Country: US (occurrence: US)
  Receive Date: 20241206
  Receipt Date: 20250816
  Transmission Date: 20251020
  Serious: No
  Sender: ALEXION PHARMACEUTICALS
  Company Number: US-AstraZeneca-CH-00761314A

PATIENT
  Sex: Male

DRUGS (2)
  1. FARXIGA [Suspect]
     Active Substance: DAPAGLIFLOZIN PROPANEDIOL
     Indication: Cardiac disorder
  2. FARXIGA [Suspect]
     Active Substance: DAPAGLIFLOZIN PROPANEDIOL

REACTIONS (9)
  - Penile erosion [Unknown]
  - Phimosis [Unknown]
  - Penile ulceration [Unknown]
  - Foreskin oedema [Unknown]
  - Blood pressure decreased [Unknown]
  - Weight decreased [Unknown]
  - Off label use [Unknown]
  - Fungal infection [Unknown]
  - Glucose urine present [Unknown]
